FAERS Safety Report 10182761 (Version 2)
Quarter: 2014Q2

REPORT INFORMATION
  Report Type: Spontaneous
  Country: US (occurrence: US)
  Receive Date: 20140520
  Receipt Date: 20140617
  Transmission Date: 20141212
  Serious: No
  Sender: FDA-Public Use
  Company Number: US-PFIZER INC-2014133537

PATIENT
  Age: 54 Year
  Sex: Female

DRUGS (6)
  1. DETROL LA [Suspect]
     Dosage: 4 MG, 1X/DAY
  2. DILANTIN [Suspect]
     Dosage: 100 MG, 3X/DAY
  3. DILANTIN [Suspect]
     Dosage: 200 MG, 2X/DAY
  4. GLIPIZIDE [Suspect]
     Dosage: UNK
  5. TEGRETOL [Suspect]
     Dosage: UNK
  6. PROPOXYPHENE HYDROCHLORIDE [Suspect]
     Dosage: UNK

REACTIONS (1)
  - Drug hypersensitivity [Unknown]
